FAERS Safety Report 9669537 (Version 3)
Quarter: 2013Q4

REPORT INFORMATION
  Report Type: Spontaneous
  Country: US (occurrence: US)
  Receive Date: 20131105
  Receipt Date: 20131226
  Transmission Date: 20140711
  Serious: Yes (Other)
  Sender: FDA-Public Use
  Company Number: US-PFIZER INC-2013313238

PATIENT
  Sex: Female

DRUGS (2)
  1. RELPAX [Suspect]
     Dosage: UNK, 2X/DAY
     Dates: end: 201307
  2. RELPAX [Suspect]
     Dosage: UNK, 1X/DAY
     Dates: start: 201307

REACTIONS (3)
  - Cardiac disorder [Unknown]
  - Arterial disorder [Unknown]
  - Migraine [Unknown]
